FAERS Safety Report 16742500 (Version 1)
Quarter: 2019Q3

REPORT INFORMATION
  Report Type: Spontaneous
  Country: US (occurrence: US)
  Receive Date: 20190826
  Receipt Date: 20190826
  Transmission Date: 20191005
  Serious: No
  Sender: FDA-Public Use
  Company Number: US-BAUSCH-BL-2019-022442

PATIENT
  Sex: Male
  Weight: 70.37 kg

DRUGS (3)
  1. FLUOROURACIL CREAM [Suspect]
     Active Substance: FLUOROURACIL
     Route: 061
  2. FLUOROURACIL CREAM [Suspect]
     Active Substance: FLUOROURACIL
     Indication: ORAL DISORDER
     Dosage: PRESCRIBED TO USE ONCE A DAY FOR 10 TO 14 DAYS
     Route: 061
  3. FLUOROURACIL CREAM [Suspect]
     Active Substance: FLUOROURACIL
     Indication: ACTINIC KERATOSIS
     Dosage: PRESCRIBED BEFORE BACK IN DEC/2018
     Route: 061

REACTIONS (4)
  - Lip haemorrhage [Not Recovered/Not Resolved]
  - Therapeutic product effect incomplete [Unknown]
  - Lip pain [Not Recovered/Not Resolved]
  - Intentional product misuse [Unknown]
